FAERS Safety Report 25528865 (Version 1)
Quarter: 2025Q3

REPORT INFORMATION
  Report Type: Spontaneous
  Country: EU (occurrence: EU)
  Receive Date: 20250708
  Receipt Date: 20250708
  Transmission Date: 20251020
  Serious: Yes (Other)
  Sender: STEMLINE THERAPEUTICS
  Company Number: EU-STEMLINE THERAPEUTICS, INC-2025-STML-DE002327

PATIENT

DRUGS (1)
  1. ORSERDU [Suspect]
     Active Substance: ELACESTRANT
     Indication: Breast cancer
     Route: 065

REACTIONS (1)
  - Myelofibrosis [Unknown]
